FAERS Safety Report 18705670 (Version 2)
Quarter: 2021Q2

REPORT INFORMATION
  Report Type: Report from Study
  Country: GB (occurrence: GB)
  Receive Date: 20210106
  Receipt Date: 20210618
  Transmission Date: 20210717
  Serious: No
  Sender: FDA-Public Use
  Company Number: GB-KARYOPHARM-2020KPT001390

PATIENT
  Age: 48 Year
  Sex: Female

DRUGS (1)
  1. SELINEXOR [Suspect]
     Active Substance: SELINEXOR
     Indication: SARCOMA
     Dosage: UNK
     Dates: start: 20201023, end: 202012

REACTIONS (5)
  - Nausea [Recovered/Resolved]
  - Sarcoma [Unknown]
  - Neutropenia [Recovered/Resolved]
  - Vomiting [Recovered/Resolved]
  - Decreased appetite [Recovered/Resolved]

NARRATIVE: CASE EVENT DATE: 20201026
